FAERS Safety Report 5489827-5 (Version None)
Quarter: 2007Q4

REPORT INFORMATION
  Report Type: 
  Country: None (occurrence: None)
  Receive Date: 20071018
  Receipt Date: 20071008
  Transmission Date: 20080405
  Serious: Yes (Death, Hospitalization)
  Sender: FDA-Public Use
  Company Number: FR-BRISTOL-MYERS SQUIBB COMPANY-13932298

PATIENT
  Age: 86 Year
  Sex: Female

DRUGS (8)
  1. COUMADIN [Suspect]
     Indication: ATRIAL FIBRILLATION
     Dosage: RECEIVED 1/4 TABLET ON 09-MAR-2007
     Dates: start: 19970101
  2. COUMADIN [Suspect]
     Indication: ATRIAL FLUTTER
     Dosage: RECEIVED 1/4 TABLET ON 09-MAR-2007
     Dates: start: 19970101
  3. COUMADIN [Suspect]
     Indication: HEART VALVE REPLACEMENT
     Dosage: RECEIVED 1/4 TABLET ON 09-MAR-2007
     Dates: start: 19970101
  4. INNOHEP [Suspect]
     Dosage: 1 DOSAGE FORM = 10000IU ANTI-XA 1DOSE/DAY
     Route: 058
     Dates: start: 20070309, end: 20070315
  5. CORDARONE [Suspect]
     Dosage: 200MG EVERY OTHER DAY
     Dates: end: 20070318
  6. FLAGYL [Suspect]
     Dates: start: 20070226, end: 20070312
  7. LEVOTHYROX [Suspect]
     Dates: end: 20070321
  8. ROCEPHIN [Suspect]
     Route: 042
     Dates: start: 20070305, end: 20070311

REACTIONS (4)
  - ABDOMINAL PAIN [None]
  - HAEMATURIA [None]
  - INTERNATIONAL NORMALISED RATIO INCREASED [None]
  - NEOPLASM MALIGNANT [None]
